FAERS Safety Report 4601711-5 (Version None)
Quarter: 2005Q1

REPORT INFORMATION
  Report Type: 
  Country: None (occurrence: None)
  Receive Date: 20050131
  Receipt Date: 20041216
  Transmission Date: 20050727
  Serious: No
  Sender: FDA-Public Use
  Company Number: 200419671US

PATIENT
  Age: 26 Year
  Sex: Male

DRUGS (5)
  1. TELITHROMYCIN (KETEK) TABLETS [Suspect]
     Indication: BRONCHITIS
     Dosage: 400 MG BID PO
     Route: 048
     Dates: start: 20041215, end: 20041216
  2. TELITHROMYCIN (KETEK) TABLETS [Suspect]
     Indication: SINUSITIS
     Dosage: 400 MG BID PO
     Route: 048
     Dates: start: 20041215, end: 20041216
  3. DEXTROMETHORPHAN HYDROBROMIDE [Concomitant]
  4. PSEUDOEPHEDRINE HYDROCHLORIDE [Concomitant]
  5. BROMPHENIRAMINE MALEATE (ANAPLEX DM) [Concomitant]

REACTIONS (2)
  - EYE IRRITATION [None]
  - MYDRIASIS [None]
